FAERS Safety Report 10765465 (Version 5)
Quarter: 2015Q1

REPORT INFORMATION
  Report Type: Spontaneous
  Country: US (occurrence: US)
  Receive Date: 20150205
  Receipt Date: 20150326
  Transmission Date: 20150721
  Serious: Yes (Life-Threatening, Congenital Anomaly, Other)
  Sender: FDA-Public Use
  Company Number: US-ELI_LILLY_AND_COMPANY-US201406006582

PATIENT
  Sex: Female

DRUGS (6)
  1. ZANTAC [Concomitant]
     Active Substance: RANITIDINE HYDROCHLORIDE
     Dosage: UNK, UNKNOWN
     Route: 064
  2. INSULIN NPH                        /01223208/ [Concomitant]
     Dosage: 24 IU, EACH MORNING
     Route: 064
  3. PROZAC [Suspect]
     Active Substance: FLUOXETINE HYDROCHLORIDE
     Indication: DEPRESSION
     Dosage: 20 MG, UNK
     Route: 064
     Dates: end: 19970602
  4. INSULIN REGULAR                    /01223201/ [Concomitant]
     Dosage: 19 IU, EACH MORNING
     Route: 064
  5. INSULIN REGULAR                    /01223201/ [Concomitant]
     Dosage: 10 IU, EACH EVENING
     Route: 064
  6. INSULIN NPH                        /01223208/ [Concomitant]
     Dosage: 24 IU, EACH EVENING
     Route: 064

REACTIONS (10)
  - Pulmonary valve stenosis congenital [Not Recovered/Not Resolved]
  - Foetal exposure during pregnancy [Recovered/Resolved]
  - Atrial septal defect [Unknown]
  - Premature baby [Recovered/Resolved]
  - Mitral valve incompetence [Unknown]
  - Macrosomia [Recovered/Resolved]
  - Transposition of the great vessels [Recovered/Resolved]
  - Patent ductus arteriosus [Unknown]
  - Tricuspid valve incompetence [Unknown]
  - Pulmonary artery stenosis congenital [Unknown]
